FAERS Safety Report 9559164 (Version 2)
Quarter: 2013Q4

REPORT INFORMATION
  Report Type: Spontaneous
  Country: US (occurrence: US)
  Receive Date: 20130927
  Receipt Date: 20131107
  Transmission Date: 20140711
  Serious: No
  Sender: FDA-Public Use
  Company Number: US-009507513-1309USA012473

PATIENT
  Age: 29 Year
  Sex: Female
  Weight: 80.27 kg

DRUGS (1)
  1. NEXPLANON [Suspect]
     Dosage: 1 ROD/THREE YEARS
     Route: 059
     Dates: start: 20130920, end: 20130920

REACTIONS (4)
  - Haemorrhage [Unknown]
  - Device difficult to use [Unknown]
  - Product quality issue [Unknown]
  - Contusion [Recovered/Resolved]
